FAERS Safety Report 5116716-8 (Version None)
Quarter: 2006Q3

REPORT INFORMATION
  Report Type: 
  Country: None (occurrence: None)
  Receive Date: 20060928
  Receipt Date: 20060922
  Transmission Date: 20061208
  Serious: Yes (Other)
  Sender: FDA-Public Use
  Company Number: US-ROCHE-464767

PATIENT
  Age: 37 Year
  Sex: Female
  Weight: 64.9 kg

DRUGS (1)
  1. ACCUTANE [Suspect]
     Route: 048
     Dates: start: 19920708, end: 19921115

REACTIONS (2)
  - NO ADVERSE EFFECT [None]
  - PREGNANCY [None]
